FAERS Safety Report 4479575-2 (Version None)
Quarter: 2004Q4

REPORT INFORMATION
  Report Type: 
  Country: None (occurrence: None)
  Receive Date: 20041015
  Receipt Date: 20040128
  Transmission Date: 20050328
  Serious: Yes (Disabling)
  Sender: FDA-Public Use
  Company Number: 200400745

PATIENT
  Age: 76 Year
  Sex: Female
  Weight: 81.6475 kg

DRUGS (4)
  1. BOTOX [Suspect]
     Indication: TORTICOLLIS
     Dosage: 105 UNITS ONCE IM
     Route: 030
     Dates: start: 20030613, end: 20030613
  2. LIPITOR [Concomitant]
  3. MYSOLINE [Concomitant]
  4. ATENOLOL [Concomitant]

REACTIONS (4)
  - ARTHROPATHY [None]
  - ESSENTIAL TREMOR [None]
  - JOINT RANGE OF MOTION DECREASED [None]
  - MUSCULAR WEAKNESS [None]
